FAERS Safety Report 17608992 (Version 4)
Quarter: 2020Q4

REPORT INFORMATION
  Report Type: Report from Study
  Country: None (occurrence: TR)
  Receive Date: 20200401
  Receipt Date: 20201007
  Transmission Date: 20210113
  Serious: Yes (Other)
  Sender: FDA-Public Use
  Company Number: TR-ABBVIE-20K-161-3343544-00

PATIENT
  Age: 77 Year
  Sex: Male

DRUGS (3)
  1. DUODOPA [Suspect]
     Active Substance: CARBIDOPA\LEVODOPA
     Dosage: MORNING DOSE (ML): 4.50 CONTINUOUS DOSE (ML): 2.60 EXTRA DOSE (ML): 0.50
     Route: 050
     Dates: start: 20200626, end: 202008
  2. DUODOPA [Suspect]
     Active Substance: CARBIDOPA\LEVODOPA
     Indication: PARKINSON^S DISEASE
     Dosage: MORNING DOSE (ML): 4.50 CONTINUOUS DOSE (ML): 2.50 EXTRA DOSE (ML): 0.50
     Route: 050
     Dates: start: 20190205, end: 20200626
  3. DUODOPA [Suspect]
     Active Substance: CARBIDOPA\LEVODOPA
     Dosage: MORNING DOSE (ML): 4.50 CONTINUOUS DOSE (ML): 3.00 EXTRA DOSE (ML): 0.50
     Route: 050
     Dates: start: 202008

REACTIONS (4)
  - Cholecystitis infective [Not Recovered/Not Resolved]
  - General physical health deterioration [Not Recovered/Not Resolved]
  - Device dislocation [Recovered/Resolved]
  - Cholelithiasis [Not Recovered/Not Resolved]

NARRATIVE: CASE EVENT DATE: 20200326
